FAERS Safety Report 5858869-X (Version None)
Quarter: 2008Q3

REPORT INFORMATION
  Report Type: 
  Country: None (occurrence: None)
  Receive Date: 20080826
  Receipt Date: 20080819
  Transmission Date: 20090109
  Serious: Yes (Hospitalization)
  Sender: FDA-Public Use
  Company Number: US-MERCK-0808USA01303

PATIENT
  Age: 57 Year
  Sex: Male

DRUGS (6)
  1. VYTORIN [Suspect]
     Indication: BLOOD CHOLESTEROL
     Route: 048
  2. VYTORIN [Suspect]
     Route: 048
     Dates: start: 20070111
  3. VYTORIN [Suspect]
     Indication: HYPERLIPIDAEMIA
     Route: 048
  4. VYTORIN [Suspect]
     Route: 048
     Dates: start: 20070111
  5. LOPRESSOR [Concomitant]
     Route: 065
  6. ASPIRIN [Concomitant]
     Route: 065

REACTIONS (2)
  - CORONARY ARTERY DISEASE [None]
  - DRUG INEFFECTIVE [None]
